FAERS Safety Report 5671564-5 (Version None)
Quarter: 2008Q1

REPORT INFORMATION
  Report Type: 
  Country: None (occurrence: None)
  Receive Date: 20080318
  Receipt Date: 20080313
  Transmission Date: 20080703
  Serious: Yes (Other)
  Sender: FDA-Public Use
  Company Number: PT-MERCK-0803PRT00001

PATIENT
  Age: 72 Year
  Sex: Male
  Weight: 85 kg

DRUGS (5)
  1. COSOPT [Suspect]
     Indication: GLAUCOMA
     Route: 047
     Dates: start: 20080101
  2. TIMOPTIC [Concomitant]
     Indication: GLAUCOMA
     Route: 047
     Dates: start: 20070101
  3. LERCANIDIPINE HYDROCHLORIDE [Concomitant]
     Route: 048
  4. INDAPAMIDE [Concomitant]
     Route: 048
  5. INDOBUFEN [Concomitant]
     Route: 048

REACTIONS (1)
  - BLINDNESS TRANSIENT [None]
